FAERS Safety Report 4416024-4 (Version None)
Quarter: 2004Q3

REPORT INFORMATION
  Report Type: 
  Country: None (occurrence: None)
  Receive Date: 20040805
  Receipt Date: 20040726
  Transmission Date: 20050211
  Serious: Yes (Hospitalization)
  Sender: FDA-Public Use
  Company Number: US-BRISTOL-MYERS SQUIBB COMPANY-12650867

PATIENT
  Age: 43 Year
  Sex: Female
  Weight: 61 kg

DRUGS (7)
  1. COUMADIN [Suspect]
     Indication: VENTRICULAR ASSIST DEVICE INSERTION
     Dosage: D'CD 7-8 DAYS BEFORE 7/20, 7/20+7/21=10MG X 1D, 7/22=NONE, 7/23=10MG X 1D, 7/24+7/25=5MG X 1D
     Route: 048
  2. PERSANTIN INJ [Concomitant]
  3. AMBIEN [Concomitant]
  4. ASPIRIN [Concomitant]
  5. MULTI-VITAMIN [Concomitant]
  6. PREVACID [Concomitant]
  7. PERCOCET [Concomitant]

REACTIONS (2)
  - BLOOD CULTURE POSITIVE [None]
  - INTERNATIONAL NORMALISED RATIO ABNORMAL [None]
